FAERS Safety Report 9603685 (Version 2)
Quarter: 2013Q4

REPORT INFORMATION
  Report Type: Spontaneous
  Country: US (occurrence: US)
  Receive Date: 20131007
  Receipt Date: 20131017
  Transmission Date: 20140711
  Serious: No
  Sender: FDA-Public Use
  Company Number: US-PFIZER INC-2013286622

PATIENT
  Sex: Female

DRUGS (2)
  1. CHANTIX [Suspect]
     Dosage: UNK
     Dates: start: 2009
  2. CHANTIX [Suspect]
     Dosage: 0.5 MG, 4X/DAY (CUTTING 1MG INTO HALF INSTEAD OF TAKING 1MG TWO TIMES DAY)
     Dates: start: 2009

REACTIONS (1)
  - Inappropriate schedule of drug administration [Unknown]
